FAERS Safety Report 9664496 (Version 2)
Quarter: 2013Q4

REPORT INFORMATION
  Report Type: Spontaneous
  Country: FR (occurrence: FR)
  Receive Date: 20131101
  Receipt Date: 20131206
  Transmission Date: 20140711
  Serious: Yes (Hospitalization, Other)
  Sender: FDA-Public Use
  Company Number: FR-ELI_LILLY_AND_COMPANY-FR201310006635

PATIENT
  Age: 62 Year
  Sex: Male
  Weight: 90 kg

DRUGS (6)
  1. ALIMTA [Suspect]
     Indication: BRONCHIAL CARCINOMA
     Dosage: 1000 MG, CYCLICAL
     Route: 042
     Dates: start: 20130109, end: 20130626
  2. CARBOPLATINE [Concomitant]
     Dosage: UNK
     Route: 042
     Dates: start: 20130109, end: 20130220
  3. METFORMINE [Concomitant]
     Indication: TYPE 2 DIABETES MELLITUS
     Dosage: 1000 MG, TID
  4. DEXAMETHASONE [Concomitant]
     Indication: PREMEDICATION
  5. FOLIC ACID [Concomitant]
     Indication: PREMEDICATION
  6. VITAMIN B12 [Concomitant]
     Indication: PREMEDICATION

REACTIONS (4)
  - Renal tubular necrosis [Recovering/Resolving]
  - Nephrogenic diabetes insipidus [Recovering/Resolving]
  - Renal failure [Recovering/Resolving]
  - Off label use [Recovered/Resolved]
